FAERS Safety Report 9984744 (Version 1)
Quarter: 2014Q1

REPORT INFORMATION
  Report Type: Spontaneous
  Country: GB (occurrence: GB)
  Receive Date: 20140307
  Receipt Date: 20140307
  Transmission Date: 20141002
  Serious: Yes (Death, Other)
  Sender: FDA-Public Use
  Company Number: GB-MERCK-1401GBR014496

PATIENT
  Age: 81 Year
  Sex: Male
  Weight: 56 kg

DRUGS (10)
  1. JANUVIA [Suspect]
     Indication: TYPE 2 DIABETES MELLITUS
     Dosage: UNK
     Route: 048
  2. PREDNISOLONE [Concomitant]
     Dosage: 30MG DAILY
  3. SIMVASTATIN [Concomitant]
     Dosage: 1 TABLET DAILY, ONE AT NIGHT, 56 TABLET
     Route: 048
     Dates: start: 20130708
  4. AMLODIPINE [Concomitant]
     Dosage: 10 MG DAILY
  5. HYDROXYZINE HYDROCHLORIDE [Concomitant]
     Dosage: 25MG DAILY
  6. OMEPRAZOLE [Concomitant]
     Dosage: 20 MG DAILY, ONE TABLET DAILY, 28 CAPSULE
     Route: 048
     Dates: start: 20130809
  7. DOXAZOSIN MESYLATE [Concomitant]
     Dosage: 2 MG, BID, TAKE ONE DAILY, 56 TABLET
     Dates: start: 20130708
  8. GLICLAZIDE [Concomitant]
     Dosage: 160 MG, BID, TWO MORNING TWO EVENING, 224 TABLET
     Route: 048
     Dates: start: 20130920
  9. HUMULIN I [Concomitant]
     Dosage: 2 PRE-FILLED DISPOSABLE INJECTION
     Route: 058
     Dates: start: 20130920
  10. BETAMETHASONE VALERATE [Concomitant]
     Dosage: USE TWICE A DAY AS REQUIRED, 100G
     Dates: start: 20130305

REACTIONS (7)
  - Tubulointerstitial nephritis [Fatal]
  - Renal failure acute [Unknown]
  - Osteoarthritis [Unknown]
  - Arthritis [Unknown]
  - Seborrhoeic keratosis [Unknown]
  - Diabetic retinopathy [Unknown]
  - Urinary incontinence [Unknown]
